FAERS Safety Report 7634681-6 (Version None)
Quarter: 2011Q3

REPORT INFORMATION
  Report Type: 
  Country: None (occurrence: None)
  Receive Date: 20110725
  Receipt Date: 20081226
  Transmission Date: 20111222
  Serious: Yes (Hospitalization, Other)
  Sender: FDA-Public Use
  Company Number: US-BAYER-200841480NA

PATIENT
  Age: 75 Year
  Sex: Male
  Weight: 98 kg

DRUGS (18)
  1. ACETYLSALICYLIC ACID SRT [Concomitant]
     Dosage: 81 MG, QD
     Dates: start: 20070102
  2. DOBUTAMINE HCL [Concomitant]
     Dosage: UNK
     Route: 042
     Dates: start: 20070109
  3. HYDROCHLOROTHIAZIDE [Concomitant]
     Dosage: 50/25MG DAILY
     Route: 048
  4. MANNITOL [Concomitant]
     Dosage: 75MEQ
     Route: 042
     Dates: start: 20070109, end: 20070109
  5. TRASYLOL [Suspect]
     Indication: AORTIC VALVE REPLACEMENT
     Dosage: LOADING DOSE 400ML, THE 50ML/HR
     Dates: start: 20070109, end: 20070109
  6. LASIX [Concomitant]
     Dosage: UNK
     Route: 048
     Dates: start: 20070102
  7. TRASYLOL [Suspect]
     Indication: PRODUCT USED FOR UNKNOWN INDICATION
     Dosage: 200ML PUMP PRIME
     Route: 042
     Dates: start: 20070109, end: 20070109
  8. TRASYLOL [Suspect]
     Indication: CORONARY ARTERY BYPASS
  9. PROTAMINE SULFATE [Concomitant]
     Dosage: 45ML/ONE DOSE
     Route: 042
     Dates: start: 20070109, end: 20070109
  10. ALBUMIN (HUMAN) [Concomitant]
     Dosage: 50GM
     Route: 042
     Dates: start: 20070109
  11. BENADRYL [Concomitant]
     Dosage: UNK
     Route: 042
     Dates: start: 20070109, end: 20070109
  12. PRIMACOR [Concomitant]
     Dosage: 25MCG/KG
     Route: 042
     Dates: start: 20070109
  13. VANCOMYCIN [Concomitant]
     Dosage: UNK
     Route: 042
     Dates: start: 20070109, end: 20070109
  14. GLUCOPHAGE [Concomitant]
     Dosage: 500 MG, BID
     Route: 048
  15. LISINOPRIL [Concomitant]
     Dosage: 20 MG, QD
     Dates: start: 20070102
  16. PREDNISONE TAB [Concomitant]
     Dosage: TAPER
     Route: 048
  17. ALTACE [Concomitant]
     Dosage: 5 MG, QD
     Route: 048
  18. HEPARIN [Concomitant]
     Dosage: UNK
     Route: 042
     Dates: start: 20070109, end: 20070109

REACTIONS (17)
  - MULTI-ORGAN FAILURE [None]
  - PAIN [None]
  - RENAL IMPAIRMENT [None]
  - ANXIETY [None]
  - GANGRENE [None]
  - STERNAL FRACTURE [None]
  - UNEVALUABLE EVENT [None]
  - RENAL FAILURE [None]
  - RENAL INJURY [None]
  - TOE AMPUTATION [None]
  - STRESS [None]
  - FEAR [None]
  - INJURY [None]
  - EMOTIONAL DISTRESS [None]
  - ANHEDONIA [None]
  - POST PROCEDURAL INFECTION [None]
  - PERIPHERAL ISCHAEMIA [None]
